FAERS Safety Report 6336133-2 (Version None)
Quarter: 2009Q3

REPORT INFORMATION
  Report Type: 
  Country: None (occurrence: None)
  Receive Date: 20090901
  Receipt Date: 20090826
  Transmission Date: 20100115
  Serious: Yes (Life-Threatening)
  Sender: FDA-Public Use
  Company Number: GB-ASTRAZENECA-2009SE05135

PATIENT
  Sex: Female

DRUGS (2)
  1. FASLODEX [Suspect]
     Indication: BREAST CANCER METASTATIC
     Dosage: 500MG INTRAMUSCULAR FASLODEX ON DAY 1, FOLLOWED BY 250MG I.M. ON DAYS 15 AND 29, AND THEREAFTER CONT
     Route: 030
     Dates: start: 20090318
  2. PLACEBO [Suspect]
     Indication: BREAST CANCER METASTATIC
     Route: 048

REACTIONS (2)
  - PLEURITIC PAIN [None]
  - PULMONARY EMBOLISM [None]
